FAERS Safety Report 5813864-1 (Version None)
Quarter: 2008Q3

REPORT INFORMATION
  Report Type: 
  Country: None (occurrence: None)
  Receive Date: 20080717
  Receipt Date: 20080709
  Transmission Date: 20090109
  Serious: Yes (Other)
  Sender: FDA-Public Use
  Company Number: FR-WYE-H04948408

PATIENT
  Age: 93 Year
  Sex: Female

DRUGS (6)
  1. INIPOMP [Suspect]
     Indication: ABDOMINAL PAIN UPPER
     Route: 048
     Dates: end: 20080401
  2. INIPOMP [Suspect]
     Route: 048
     Dates: start: 20080601
  3. CORTANCYL [Concomitant]
     Indication: BACK PAIN
     Route: 048
  4. ACETAMINOPHEN [Concomitant]
     Dosage: UNKNOWN
     Route: 048
  5. LASIX [Suspect]
     Indication: OEDEMA
     Route: 048
     Dates: end: 20080401
  6. LASIX [Suspect]
     Route: 048
     Dates: start: 20080101

REACTIONS (1)
  - HYPONATRAEMIA [None]
